FAERS Safety Report 4943463-5 (Version None)
Quarter: 2006Q1

REPORT INFORMATION
  Report Type: 
  Country: None (occurrence: None)
  Receive Date: 20060309
  Receipt Date: 20060224
  Transmission Date: 20060701
  Serious: Yes (Other)
  Sender: FDA-Public Use
  Company Number: 2006028585

PATIENT
  Age: 68 Year
  Sex: Male
  Weight: 102.0593 kg

DRUGS (6)
  1. VIAGRA [Suspect]
     Indication: ERECTILE DYSFUNCTION
     Dosage: 100 MG (100 MG, AS NECESSARY)
  2. VALIUM [Concomitant]
  3. KLONOPIN [Concomitant]
  4. ACTOS [Concomitant]
  5. PRANDIN [Concomitant]
  6. VALTREX (VALACICLOVIR HYDROCHLOLRIDE) [Concomitant]

REACTIONS (7)
  - ARTIFICIAL CROWN PROCEDURE [None]
  - BACK PAIN [None]
  - DRUG INEFFECTIVE [None]
  - ERECTILE DYSFUNCTION [None]
  - MYOCARDIAL INFARCTION [None]
  - SCIATICA [None]
  - TOOTH FRACTURE [None]
